FAERS Safety Report 7476491-9 (Version None)
Quarter: 2011Q2

REPORT INFORMATION
  Report Type: 
  Country: None (occurrence: None)
  Receive Date: 20110510
  Receipt Date: 20110510
  Transmission Date: 20111010
  Serious: Yes (Hospitalization)
  Sender: FDA-Public Use
  Company Number: None

PATIENT
  Sex: Male
  Weight: 66.1 kg

DRUGS (8)
  1. TAXOL [Suspect]
     Dosage: 388 MG
  2. CARISOPRODOL [Concomitant]
  3. MORPHINE SULFATE [Concomitant]
  4. SODIUM CHLORIDE [Concomitant]
  5. ERBITUX [Suspect]
     Dosage: 776 MG
  6. CARBOPLATIN [Suspect]
     Dosage: 672 MG
  7. LORAZEPAM [Concomitant]
  8. HEPARIN SODIUM [Concomitant]

REACTIONS (10)
  - HYPONATRAEMIA [None]
  - THROMBOSIS [None]
  - EMBOLISM [None]
  - PNEUMONIA [None]
  - RESPIRATORY DISTRESS [None]
  - CARDIOPULMONARY FAILURE [None]
  - CONFUSIONAL STATE [None]
  - INFUSION RELATED REACTION [None]
  - CEREBROVASCULAR ACCIDENT [None]
  - DYSPNOEA [None]
